FAERS Safety Report 15861053 (Version 2)
Quarter: 2019Q1

REPORT INFORMATION
  Report Type: Spontaneous
  Country: KR (occurrence: KR)
  Receive Date: 20190124
  Receipt Date: 20190215
  Transmission Date: 20190417
  Serious: Yes (Hospitalization)
  Sender: FDA-Public Use
  Company Number: KR-009507513-1901KOR003950

PATIENT
  Sex: Female

DRUGS (8)
  1. PINE [Concomitant]
     Dosage: 1000 IU; QUANTITY 1, DAYS 1
     Dates: start: 20181218
  2. SODIUM CHLORIDE. [Concomitant]
     Active Substance: SODIUM CHLORIDE
     Dosage: 1000 ML (BAG); QUANTITY 1, DAYS 2
     Dates: start: 20181218
  3. KEYTRUDA [Suspect]
     Active Substance: PEMBROLIZUMAB
     Indication: OVARIAN CANCER
     Dosage: START DATE: 18-DEC-2018, QUANTITY 2, DAYS 1
  4. MULTIBLUE5 [Concomitant]
     Dosage: QUANTITY 1, DAYS 1
     Dates: start: 20181218
  5. PENIRAMIN [Concomitant]
     Dosage: QUANTITY 1, DAYS 1
     Dates: start: 20181218
  6. DEXTROSE. [Concomitant]
     Active Substance: DEXTROSE
     Dosage: 1000 ML/BAG ;QUANTITY 1, DAYS 1
     Dates: start: 20181218
  7. LASIX [Concomitant]
     Active Substance: FUROSEMIDE
     Dosage: QUANTITY 1, DAYS 1
     Dates: start: 20181218
  8. SODIUM CHLORIDE. [Concomitant]
     Active Substance: SODIUM CHLORIDE
     Dosage: 1000 ML; QUANTITY 1, DAYS 1
     Dates: start: 20181218

REACTIONS (4)
  - Product use in unapproved indication [Unknown]
  - Adverse event [Unknown]
  - Adverse event [Unknown]
  - Adverse event [Recovered/Resolved]

NARRATIVE: CASE EVENT DATE: 20181212
